FAERS Safety Report 7683593-0 (Version None)
Quarter: 2011Q3

REPORT INFORMATION
  Report Type: 
  Country: None (occurrence: None)
  Receive Date: 20110815
  Receipt Date: 20110808
  Transmission Date: 20111222
  Serious: Yes (Disabling)
  Sender: FDA-Public Use
  Company Number: DK-BRACCO-000016

PATIENT
  Sex: Male
  Weight: 83 kg

DRUGS (12)
  1. NEORECORMON [Concomitant]
  2. APURIN [Concomitant]
  3. CALCIUM CARBONATE [Concomitant]
  4. COLECALCIFEROL [Concomitant]
  5. EPOETIN ALFA [Concomitant]
  6. FUROSEMIDE [Concomitant]
  7. CONTRAST MEDIA [Suspect]
     Indication: RENAL TRANSPLANT
     Dates: start: 20020902, end: 20020902
  8. CONTRAST MEDIA [Suspect]
     Indication: NUCLEAR MAGNETIC RESONANCE IMAGING
     Dates: start: 20020606, end: 20020606
  9. METOPROLOL SUCCINATE [Concomitant]
  10. PHOS-EX [Concomitant]
  11. CONTRAST MEDIA [Suspect]
     Indication: RENAL HYPERTENSION
     Dates: start: 20020606, end: 20020606
  12. NORVASC [Concomitant]

REACTIONS (12)
  - CALCINOSIS [None]
  - MUSCULOSKELETAL STIFFNESS [None]
  - SENSORY LOSS [None]
  - MOBILITY DECREASED [None]
  - PRURITUS [None]
  - PAIN [None]
  - SKIN DISORDER [None]
  - SKIN INDURATION [None]
  - NEPHROGENIC SYSTEMIC FIBROSIS [None]
  - ARTHRALGIA [None]
  - OEDEMA PERIPHERAL [None]
  - PAIN OF SKIN [None]
